FAERS Safety Report 21841025 (Version 1)
Quarter: 2023Q1

REPORT INFORMATION
  Report Type: Report from Study
  Country: DE (occurrence: DE)
  Receive Date: 20230110
  Receipt Date: 20230110
  Transmission Date: 20230417
  Serious: Yes (Hospitalization)
  Sender: FDA-Public Use
  Company Number: DE-ABBVIE-4263479

PATIENT
  Age: 68 Year
  Sex: Female

DRUGS (1)
  1. HUMIRA [Suspect]
     Active Substance: ADALIMUMAB
     Indication: Crohn^s disease
     Route: 058
     Dates: start: 20181106, end: 202212

REACTIONS (2)
  - Femoral neck fracture [Recovered/Resolved]
  - Wisdom teeth removal [Recovered/Resolved]

NARRATIVE: CASE EVENT DATE: 20220616
